FAERS Safety Report 25381774 (Version 1)
Quarter: 2025Q2

REPORT INFORMATION
  Report Type: Spontaneous
  Country: GB (occurrence: GB)
  Receive Date: 20250531
  Receipt Date: 20250531
  Transmission Date: 20250716
  Serious: Yes (Other)
  Sender: TEVA
  Company Number: GB-MHRA-TPP21153982C3984477YC1748263793301

PATIENT
  Age: 90 Year
  Sex: Female
  Weight: 62 kg

DRUGS (12)
  1. TRIMETHOPRIM [Suspect]
     Active Substance: TRIMETHOPRIM
     Indication: Product used for unknown indication
     Dosage: DAILY DOSE: 200MG; DURATION: 4 DAYS
     Route: 065
     Dates: start: 20250412, end: 20250415
  2. ACETAMINOPHEN [Concomitant]
     Active Substance: ACETAMINOPHEN
     Indication: Ill-defined disorder
     Dates: start: 20250404
  3. DOCUSATE SODIUM [Concomitant]
     Active Substance: DOCUSATE SODIUM
     Indication: Ill-defined disorder
     Dates: start: 20250404
  4. CARBOHYDRATES\FATTY ACIDS\MINERALS\PROTEIN\VITAMINS [Concomitant]
     Active Substance: CARBOHYDRATES\FATTY ACIDS\MINERALS\PROTEIN\VITAMINS
     Indication: Ill-defined disorder
     Dosage: DAILY DOSE: 1 DOSAGE FORM
     Dates: start: 20250404
  5. EDOXABAN [Concomitant]
     Active Substance: EDOXABAN
     Indication: Ill-defined disorder
     Dosage: DAILY DOSE: 1 DOSAGE FORM
     Dates: start: 20250404
  6. METFORMIN [Concomitant]
     Active Substance: METFORMIN HYDROCHLORIDE
     Indication: Ill-defined disorder
     Dosage: DAILY DOSE: 4 DOSAGE FORM
     Dates: start: 20250404
  7. PROSHIELD PLUS [Concomitant]
     Indication: Ill-defined disorder
     Dosage: DAILY DOSE: 2 DOSAGE FORM; DURATION: 8 DAYS
     Dates: start: 20250408, end: 20250415
  8. AMOXICILLIN\CLAVULANATE POTASSIUM [Concomitant]
     Active Substance: AMOXICILLIN\CLAVULANATE POTASSIUM
     Indication: Ill-defined disorder
     Dates: start: 20250523
  9. ADCAL [Concomitant]
     Indication: Ill-defined disorder
     Dosage: TAKE ONE TWICE DAILY
     Dates: start: 20250404
  10. DOXAZOSIN [Concomitant]
     Active Substance: DOXAZOSIN MESYLATE
     Indication: Ill-defined disorder
     Dates: start: 20250404
  11. SENNA [Concomitant]
     Active Substance: SENNOSIDES
     Indication: Ill-defined disorder
     Dates: start: 20250404
  12. FOLIC ACID [Concomitant]
     Active Substance: FOLIC ACID
     Indication: Ill-defined disorder
     Dosage: DAILY DOSE: 1 DOSAGE FORM
     Dates: start: 20250404

REACTIONS (1)
  - Drug hypersensitivity [Unknown]
